FAERS Safety Report 12102393 (Version 2)
Quarter: 2016Q1

REPORT INFORMATION
  Report Type: Report from Study
  Country: US (occurrence: US)
  Receive Date: 20160222
  Receipt Date: 20160304
  Transmission Date: 20160526
  Serious: Yes (Hospitalization, Disabling)
  Sender: FDA-Public Use
  Company Number: US-ABBVIE-16K-163-1562555-00

PATIENT
  Age: 68 Year
  Sex: Female
  Weight: 38.59 kg

DRUGS (1)
  1. HUMIRA [Suspect]
     Active Substance: ADALIMUMAB
     Indication: COLITIS ULCERATIVE
     Route: 058
     Dates: start: 20130507

REACTIONS (5)
  - Peroneal nerve palsy [Not Recovered/Not Resolved]
  - Hip arthroplasty [Recovered/Resolved]
  - Clostridium difficile infection [Recovered/Resolved]
  - Full blood count decreased [Not Recovered/Not Resolved]
  - Liposarcoma [Recovered/Resolved]

NARRATIVE: CASE EVENT DATE: 201409
